FAERS Safety Report 14157705 (Version 1)
Quarter: 2017Q4

REPORT INFORMATION
  Report Type: Spontaneous
  Country: CN (occurrence: CN)
  Receive Date: 20171103
  Receipt Date: 20171103
  Transmission Date: 20180321
  Serious: Yes (Other)
  Sender: FDA-Public Use
  Company Number: CN-GILEAD-2017-0302731

PATIENT

DRUGS (2)
  1. SEBIVO [Concomitant]
     Active Substance: TELBIVUDINE
     Indication: HEPATITIS B
     Dosage: UNK, QD
     Route: 064
  2. VIREAD [Suspect]
     Active Substance: TENOFOVIR DISOPROXIL FUMARATE
     Indication: HEPATITIS B
     Dosage: 300 MG, QD
     Route: 064
     Dates: start: 20171028

REACTIONS (2)
  - Foetal movement disorder [Unknown]
  - Foetal exposure during pregnancy [Not Recovered/Not Resolved]
